FAERS Safety Report 6660175-0 (Version None)
Quarter: 2010Q1

REPORT INFORMATION
  Report Type: 
  Country: None (occurrence: None)
  Receive Date: 20100331
  Receipt Date: 20100318
  Transmission Date: 20100710
  Serious: No
  Sender: FDA-Public Use
  Company Number: 2009BI022470

PATIENT
  Age: 59 Year
  Sex: Male

DRUGS (1)
  1. TYSABRI [Suspect]
     Indication: MULTIPLE SCLEROSIS
     Route: 042
     Dates: start: 20090511

REACTIONS (5)
  - ARTHRALGIA [None]
  - HEADACHE [None]
  - NEURALGIA [None]
  - ORAL PAIN [None]
  - PAIN [None]
